FAERS Safety Report 5588528-2 (Version None)
Quarter: 2007Q4

REPORT INFORMATION
  Report Type: 
  Country: None (occurrence: None)
  Receive Date: 20071212
  Receipt Date: 20070815
  Transmission Date: 20080405
  Serious: No
  Sender: FDA-Public Use
  Company Number: 2007RL000368

PATIENT
  Age: 61 Year
  Sex: Female
  Weight: 63.5036 kg

DRUGS (7)
  1. LOVAZA [Suspect]
     Indication: BLOOD CHOLESTEROL INCREASED
     Dosage: 1 GM;BID;PO
     Route: 048
     Dates: start: 20070601
  2. BENADRYL [Concomitant]
  3. NASONEX [Concomitant]
  4. NAPROSYN [Concomitant]
  5. PREMARIN CREAM [Concomitant]
  6. VITAMIN CAP [Concomitant]
  7. CALCIUM [Concomitant]

REACTIONS (3)
  - MUSCULOSKELETAL STIFFNESS [None]
  - MYALGIA [None]
  - OFF LABEL USE [None]
